FAERS Safety Report 10338324 (Version 2)
Quarter: 2014Q3

REPORT INFORMATION
  Report Type: Spontaneous
  Country: CA (occurrence: CA)
  Receive Date: 20140724
  Receipt Date: 20140724
  Transmission Date: 20150326
  Serious: Yes (Other)
  Sender: FDA-Public Use
  Company Number: CA-BAYER-2014-097370

PATIENT
  Age: 86 Year
  Sex: Male

DRUGS (6)
  1. ASPIRIN. [Suspect]
     Active Substance: ASPIRIN
     Dosage: UNK
  2. APO-LEVOCARB [Concomitant]
     Active Substance: CARBIDOPA\LEVODOPA
  3. AMITRIPTYLINE [Concomitant]
     Active Substance: AMITRIPTYLINE
  4. TECTA [Concomitant]
     Active Substance: PANTOPRAZOLE MAGNESIUM
  5. ATENOLOL. [Concomitant]
     Active Substance: ATENOLOL
  6. LEVODOPA [Concomitant]
     Active Substance: LEVODOPA

REACTIONS (5)
  - Pain [None]
  - Parkinson^s disease [None]
  - Duodenal ulcer perforation [None]
  - Renal failure [None]
  - Headache [None]

NARRATIVE: CASE EVENT DATE: 2009
